FAERS Safety Report 8409632-7 (Version None)
Quarter: 2012Q2

REPORT INFORMATION
  Report Type: 
  Country: None (occurrence: None)
  Receive Date: 20120531
  Receipt Date: 20120531
  Transmission Date: 20120825
  Serious: Yes (Hospitalization)
  Sender: FDA-Public Use
  Company Number: None

PATIENT
  Age: 62 Year
  Sex: Female
  Weight: 50.3493 kg

DRUGS (2)
  1. LYRICA [Suspect]
     Indication: FIBROMYALGIA
     Dosage: 50 MG PO
     Route: 048
  2. LYRICA [Suspect]
     Indication: NEURALGIA
     Dosage: 50 MG PO
     Route: 048

REACTIONS (9)
  - HYPERTENSION [None]
  - RASH [None]
  - OCULAR HYPERAEMIA [None]
  - SWELLING [None]
  - EYE PAIN [None]
  - TACHYCARDIA [None]
  - CHEST PAIN [None]
  - OEDEMA PERIPHERAL [None]
  - VISION BLURRED [None]
